FAERS Safety Report 9215159 (Version 1)
Quarter: 2013Q2

REPORT INFORMATION
  Report Type: Spontaneous
  Country: BR (occurrence: BR)
  Receive Date: 20130405
  Receipt Date: 20130405
  Transmission Date: 20140414
  Serious: Yes (Hospitalization)
  Sender: FDA-Public Use
  Company Number: BR-ASTRAZENECA-2013SE20855

PATIENT
  Age: 30058 Day
  Sex: Female

DRUGS (2)
  1. ATACAND [Suspect]
     Indication: HYPERTENSION
     Route: 048
  2. OMEPRAZOLE [Suspect]
     Indication: GASTRITIS PROPHYLAXIS
     Dosage: DAILY
     Route: 048
     Dates: start: 2000, end: 20130319

REACTIONS (2)
  - Diverticulitis [Recovered/Resolved]
  - Pancreatic disorder [Recovered/Resolved]
